FAERS Safety Report 21091323 (Version 7)
Quarter: 2024Q2

REPORT INFORMATION
  Report Type: Report from Study
  Country: KR (occurrence: KR)
  Receive Date: 20220716
  Receipt Date: 20240418
  Transmission Date: 20240715
  Serious: Yes (Death, Other)
  Sender: FDA-Public Use
  Company Number: KR-NOVARTISPH-NVSC2022KR160216

PATIENT
  Sex: Male
  Weight: 68.1 kg

DRUGS (10)
  1. RYDAPT [Suspect]
     Active Substance: MIDOSTAURIN
     Indication: Acute myeloid leukaemia
     Dosage: 50 MG, BID
     Route: 048
     Dates: start: 20220705
  2. TAZOPERAN [Concomitant]
     Indication: Infection prophylaxis
     Dosage: 3.375 G, QID
     Route: 042
     Dates: start: 20220626, end: 20220704
  3. ZOYLEX [Concomitant]
     Indication: Infection prophylaxis
     Dosage: 250 MG, QD
     Route: 042
     Dates: start: 20220627, end: 20220628
  4. NOXAFIL [Concomitant]
     Active Substance: POSACONAZOLE
     Indication: Infection prophylaxis
     Dosage: 300 MG, QD
     Route: 048
     Dates: start: 20220627
  5. CYTARABINE [Concomitant]
     Active Substance: CYTARABINE
     Indication: Acute myeloid leukaemia
     Dosage: 372 MG, QD
     Route: 042
     Dates: start: 20220627, end: 20220703
  6. DAUNORUBICIN HYDROCHLORIDE [Concomitant]
     Active Substance: DAUNORUBICIN HYDROCHLORIDE
     Indication: Acute myeloid leukaemia
     Dosage: 167.4 MG, QD
     Route: 042
     Dates: start: 20220627, end: 20220629
  7. ALLOPURINOL [Concomitant]
     Active Substance: ALLOPURINOL
     Indication: Prophylaxis
     Dosage: 300 MG, QD
     Route: 048
     Dates: start: 20220627, end: 20220629
  8. PROPACETAMOL HYDROCHLORIDE [Concomitant]
     Active Substance: PROPACETAMOL HYDROCHLORIDE
     Indication: Pyrexia
     Dosage: 1 G, PRN
     Route: 042
     Dates: start: 20220625
  9. VASOPRESSIN [Concomitant]
     Active Substance: VASOPRESSIN
     Indication: Blood pressure abnormal
     Dosage: UNK, QD (3 AMP, 20 UNIT/ML)
     Route: 030
     Dates: start: 20220710
  10. EPINEPHRINE [Concomitant]
     Active Substance: EPINEPHRINE
     Indication: Blood pressure abnormal
     Dosage: UNK (10 AMP COUNTINUOUS)
     Route: 042
     Dates: start: 20220710

REACTIONS (8)
  - Pulmonary haemorrhage [Fatal]
  - Haemoptysis [Fatal]
  - Oxygen saturation decreased [Fatal]
  - Supraventricular tachycardia [Recovered/Resolved]
  - Febrile neutropenia [Not Recovered/Not Resolved]
  - Lung infiltration [Unknown]
  - Lung consolidation [Unknown]
  - Pneumonia [Unknown]

NARRATIVE: CASE EVENT DATE: 20220705
